FAERS Safety Report 16476615 (Version 2)
Quarter: 2019Q4

REPORT INFORMATION
  Report Type: Report from Study
  Country: None (occurrence: RO)
  Receive Date: 20190626
  Receipt Date: 20191108
  Transmission Date: 20200122
  Serious: Yes (Death)
  Sender: FDA-Public Use
  Company Number: RO-ABBVIE-19K-135-2832665-00

PATIENT
  Age: 51 Year
  Sex: Female

DRUGS (1)
  1. HUMIRA [Suspect]
     Active Substance: ADALIMUMAB
     Indication: RHEUMATOID ARTHRITIS
     Route: 058
     Dates: start: 201804, end: 201905

REACTIONS (6)
  - Vertigo [Fatal]
  - Fatigue [Fatal]
  - Cardio-respiratory arrest [Fatal]
  - Bronchopulmonary disease [Fatal]
  - Polyserositis [Fatal]
  - Sepsis [Fatal]

NARRATIVE: CASE EVENT DATE: 201904
